FAERS Safety Report 10255642 (Version 1)
Quarter: 2014Q2

REPORT INFORMATION
  Report Type: Spontaneous
  Country: US (occurrence: None)
  Receive Date: 20140620
  Receipt Date: 20140620
  Transmission Date: 20141212
  Serious: Yes (Other)
  Sender: FDA-Public Use
  Company Number: FK201402308

PATIENT
  Age: 14 Year
  Sex: Male

DRUGS (4)
  1. CEFTRIAXON [Suspect]
     Indication: PNEUMONIA BACTERIAL
  2. AZITHROMYCIN (AZITHROMYCIN) [Concomitant]
  3. MESALAMINE (MESALAZINE) [Concomitant]
  4. METHOTREXATE (METHOTREXATE) [Concomitant]

REACTIONS (14)
  - Haemolytic anaemia [None]
  - Anal fissure [None]
  - Abdominal pain [None]
  - Back pain [None]
  - Headache [None]
  - Vomiting [None]
  - Pyrexia [None]
  - Abdominal distension [None]
  - Tachycardia [None]
  - Tachypnoea [None]
  - Hyperhidrosis [None]
  - Renal tubular necrosis [None]
  - Acute hepatic failure [None]
  - Coagulopathy [None]
